FAERS Safety Report 7731071-2 (Version None)
Quarter: 2011Q3

REPORT INFORMATION
  Report Type: 
  Country: None (occurrence: None)
  Receive Date: 20110906
  Receipt Date: 20110906
  Transmission Date: 20111222
  Serious: Yes (Death)
  Sender: FDA-Public Use
  Company Number: None

PATIENT
  Sex: Female
  Weight: 145 kg

DRUGS (13)
  1. ATROVENT [Concomitant]
  2. FLUOXETINE [Concomitant]
  3. IBUPROFEN [Concomitant]
  4. DEPAKOTE [Concomitant]
  5. CALCIUM CARBONATE [Concomitant]
  6. VENTOLIN HFA [Concomitant]
  7. SYNTHROID [Concomitant]
  8. FLUOXETINE [Concomitant]
  9. CLOZAPINE [Concomitant]
  10. YASMIN [Suspect]
     Indication: MENSTRUATION IRREGULAR
     Dosage: 1
     Route: 048
     Dates: start: 20100101, end: 20110805
  11. THERAGRAM-M [Concomitant]
  12. FLOVENT [Concomitant]
  13. CETIRIZINE HCL [Concomitant]

REACTIONS (2)
  - PULMONARY EMBOLISM [None]
  - SUDDEN DEATH [None]
